FAERS Safety Report 20759495 (Version 1)
Quarter: 2022Q2

REPORT INFORMATION
  Report Type: Spontaneous
  Country: US (occurrence: US)
  Receive Date: 20220427
  Receipt Date: 20220427
  Transmission Date: 20220721
  Serious: No
  Sender: FDA-Public Use
  Company Number: US-BioHaven Pharmaceuticals-2022BHV000520

PATIENT
  Age: 23 Year
  Sex: Female

DRUGS (3)
  1. NURTEC ODT [Suspect]
     Active Substance: RIMEGEPANT SULFATE
     Indication: Migraine
     Dosage: PATIENT HAD 8 TABLETS, TAKEN AS NEEDED, ONE TAB IN 24 HRS. PATIENT FILLED IT TWICE.
     Route: 065
     Dates: start: 20211028, end: 202112
  2. NURTEC ODT [Suspect]
     Active Substance: RIMEGEPANT SULFATE
     Indication: Headache
  3. RIZATRIPTAN [Concomitant]
     Active Substance: RIZATRIPTAN
     Indication: Migraine
     Route: 065

REACTIONS (3)
  - Drug ineffective [Unknown]
  - Surgery [Recovered/Resolved]
  - COVID-19 [Recovered/Resolved]

NARRATIVE: CASE EVENT DATE: 20220101
